FAERS Safety Report 15469687 (Version 1)
Quarter: 2018Q4

REPORT INFORMATION
  Report Type: Spontaneous
  Country: US (occurrence: US)
  Receive Date: 20181005
  Receipt Date: 20181005
  Transmission Date: 20190205
  Serious: No
  Sender: FDA-Public Use
  Company Number: US-SA-2018SA270410

PATIENT
  Sex: Male

DRUGS (1)
  1. ZANTAC 75 [Suspect]
     Active Substance: RANITIDINE HYDROCHLORIDE
     Dosage: 75 MG, UNK
     Route: 065

REACTIONS (4)
  - Diarrhoea [Unknown]
  - Malaise [Unknown]
  - Syncope [Unknown]
  - Vomiting [Unknown]
